FAERS Safety Report 5411963-X (Version None)
Quarter: 2007Q3

REPORT INFORMATION
  Report Type: 
  Country: None (occurrence: None)
  Receive Date: 20070810
  Receipt Date: 20070810
  Transmission Date: 20080115
  Serious: No
  Sender: FDA-Public Use
  Company Number: None

PATIENT
  Sex: Female
  Weight: 90 kg

DRUGS (8)
  1. CYCLOPHOSPHAMIDE [Suspect]
     Dosage: 1500 MG
  2. DOXIL [Suspect]
     Dosage: 80 MG
  3. PREDNISONE TAB [Suspect]
     Dosage: 100 MG
  4. RITUXIMAB (MOAB C2B8 ANTI CD20, CHIMERIC) [Suspect]
     Dosage: 750 MG
  5. VINCRISTINE SULFATE [Suspect]
     Dosage: 2 MG
  6. AZITHROMYCIN [Concomitant]
  7. BACTRIM [Concomitant]
  8. FLUCONAZOLE [Concomitant]

REACTIONS (1)
  - NEUTROPENIA [None]
